FAERS Safety Report 21183644 (Version 1)
Quarter: 2022Q3

REPORT INFORMATION
  Report Type: Spontaneous
  Country: US (occurrence: US)
  Receive Date: 20220808
  Receipt Date: 20220808
  Transmission Date: 20221026
  Serious: No
  Sender: FDA-Public Use
  Company Number: US-BAUSCH-BL-2022-019536

PATIENT
  Age: 73 Year
  Sex: Female
  Weight: 68.100 kg

DRUGS (3)
  1. XIFAXAN [Suspect]
     Active Substance: RIFAXIMIN
     Indication: Gastrointestinal bacterial overgrowth
     Route: 048
     Dates: start: 20220731
  2. XIFAXAN [Suspect]
     Active Substance: RIFAXIMIN
     Indication: Product use in unapproved indication
  3. XIFAXAN [Suspect]
     Active Substance: RIFAXIMIN
     Indication: Off label use

REACTIONS (4)
  - Feeling hot [Not Recovered/Not Resolved]
  - Erythema [Not Recovered/Not Resolved]
  - Flushing [Not Recovered/Not Resolved]
  - Off label use [Unknown]

NARRATIVE: CASE EVENT DATE: 20220101
